FAERS Safety Report 7730896-7 (Version None)
Quarter: 2011Q3

REPORT INFORMATION
  Report Type: 
  Country: None (occurrence: None)
  Receive Date: 20110906
  Receipt Date: 20110829
  Transmission Date: 20111222
  Serious: Yes (Hospitalization)
  Sender: FDA-Public Use
  Company Number: US-BAYER-201027368NA

PATIENT
  Age: 23 Year
  Sex: Female
  Weight: 104.31 kg

DRUGS (23)
  1. FOLIC ACID [Concomitant]
     Indication: SICKLE CELL ANAEMIA
     Dosage: UNK
     Dates: start: 19840101
  2. IBUPROFEN [Concomitant]
     Indication: PAIN
     Dosage: UNK
     Dates: start: 19980101
  3. OXYCODONE HCL [Concomitant]
     Dosage: 5 MG, QD
  4. ZOFRAN [Concomitant]
     Indication: NAUSEA
     Dosage: 4 MG, BID
  5. NEXIUM [Concomitant]
     Indication: DYSPEPSIA
     Dosage: 40 MG, UNK
  6. METHADONE HCL [Concomitant]
     Indication: PAIN
     Dosage: 110 MG, BID
  7. ALBUTEROL SULFATE AUTOHALER [Concomitant]
     Indication: ASTHMA
     Dosage: UNK
     Dates: start: 20000101
  8. EFFEXOR [Concomitant]
     Indication: DEPRESSION
     Dosage: 100 MG, QD
  9. COUMADIN [Concomitant]
     Dosage: UNK
     Dates: start: 20080101
  10. BENADRYL [Concomitant]
     Indication: NAUSEA
  11. EFFEXOR XR [Concomitant]
     Dosage: 75 MG, UNK
  12. ACTIQ [Concomitant]
     Dosage: UNK
  13. BENADRYL [Concomitant]
  14. EFFEXOR XR [Concomitant]
     Dosage: 150 MG, QD
  15. TOPAMAX [Concomitant]
     Dosage: 100 MG, OM
  16. TOPAMAX [Concomitant]
     Dosage: 150 MG, UNK
  17. YASMIN [Suspect]
     Indication: ORAL CONTRACEPTION
     Dosage: UNK UNK, QD
     Route: 048
     Dates: start: 20020401, end: 20080301
  18. TOPAMAX [Concomitant]
     Dosage: 200 MG, HS
  19. FENTANYL CITRATE [Concomitant]
  20. DILAUDID [Concomitant]
  21. PERCOCET [Concomitant]
     Dosage: UNK UNK, PRN
  22. SUBOXONE [Concomitant]
     Indication: PAIN
     Dosage: 8 MG, PRN
  23. HYDREA [Concomitant]
     Dosage: 1000 MG, UNK

REACTIONS (5)
  - PULMONARY EMBOLISM [None]
  - PAIN [None]
  - ANHEDONIA [None]
  - INJURY [None]
  - ANXIETY [None]
